FAERS Safety Report 24617037 (Version 1)
Quarter: 2024Q4

REPORT INFORMATION
  Report Type: Report from Study
  Country: US (occurrence: US)
  Receive Date: 20241114
  Receipt Date: 20241114
  Transmission Date: 20250114
  Serious: Yes (Death, Other)
  Sender: ACADIA PHARMACEUTICALS
  Company Number: US-ACADIA PHARMACEUTICALS INC.-ACA-2024-PIM-007145

PATIENT
  Sex: Male

DRUGS (12)
  1. NUPLAZID [Suspect]
     Active Substance: PIMAVANSERIN TARTRATE
     Indication: Parkinson^s disease
     Dosage: 34 MILLIGRAM, QD
     Route: 048
     Dates: start: 201902
  2. LUMIGAN [Concomitant]
     Active Substance: BIMATOPROST
  3. ATORVASTATIN [Concomitant]
     Active Substance: ATORVASTATIN
  4. FINASTERIDE [Concomitant]
     Active Substance: FINASTERIDE
  5. CARBIDOPA [Concomitant]
     Active Substance: CARBIDOPA
  6. MIDODRINE [Concomitant]
     Active Substance: MIDODRINE
  7. VITAMIN B12 [Concomitant]
     Active Substance: CYANOCOBALAMIN
  8. ASPIRIN [Concomitant]
     Active Substance: ASPIRIN
  9. MEMANTINE [Concomitant]
     Active Substance: MEMANTINE
  10. ESCITALOPRAM OXALATE [Concomitant]
     Active Substance: ESCITALOPRAM OXALATE
  11. VITAMINS NOS [Concomitant]
     Active Substance: VITAMINS
  12. COLACE [Concomitant]
     Active Substance: DOCUSATE SODIUM

REACTIONS (1)
  - Death [Fatal]
